FAERS Safety Report 13159717 (Version 1)
Quarter: 2017Q1

REPORT INFORMATION
  Report Type: Spontaneous
  Country: JP (occurrence: JP)
  Receive Date: 20170127
  Receipt Date: 20170127
  Transmission Date: 20170428
  Serious: Yes (Other)
  Sender: FDA-Public Use
  Company Number: JP-PFIZER INC-2017037011

PATIENT
  Age: 9 Decade

DRUGS (2)
  1. PRECEDEX [Suspect]
     Active Substance: DEXMEDETOMIDINE HYDROCHLORIDE
     Indication: SEDATION
     Dosage: UNK
  2. SILECE [Concomitant]
     Active Substance: FLUNITRAZEPAM
     Dosage: UNK
     Route: 042

REACTIONS (1)
  - Pneumothorax [Recovering/Resolving]
